FAERS Safety Report 5815942-X (Version None)
Quarter: 2008Q3

REPORT INFORMATION
  Report Type: 
  Country: None (occurrence: None)
  Receive Date: 20080716
  Receipt Date: 20071001
  Transmission Date: 20090109
  Serious: Yes (Hospitalization)
  Sender: FDA-Public Use
  Company Number: US-WYE-H00447407

PATIENT
  Age: 66 Year
  Sex: Male

DRUGS (1)
  1. MYLOTARG [Suspect]
     Indication: ACUTE MYELOID LEUKAEMIA
     Dosage: 9 MG/M2, INTRAVENOUS
     Route: 042
     Dates: start: 20070101, end: 20070101

REACTIONS (1)
  - HYPOTENSION [None]
